FAERS Safety Report 9261581 (Version 1)
Quarter: 2013Q2

REPORT INFORMATION
  Report Type: Spontaneous
  Country: FR (occurrence: FR)
  Receive Date: 20130429
  Receipt Date: 20130429
  Transmission Date: 20140414
  Serious: Yes (Other)
  Sender: FDA-Public Use
  Company Number: FR-PFIZER INC-2013129336

PATIENT
  Sex: 0

DRUGS (1)
  1. LYRICA [Suspect]
     Indication: NEURALGIA
     Dosage: LOW DOSE

REACTIONS (1)
  - Neutropenia [Recovering/Resolving]
